FAERS Safety Report 24631299 (Version 1)
Quarter: 2024Q4

REPORT INFORMATION
  Report Type: Spontaneous
  Country: US (occurrence: US)
  Receive Date: 20241118
  Receipt Date: 20241118
  Transmission Date: 20250114
  Serious: No
  Sender: MAYNE
  Company Number: US-MAYNE PHARMA-2024MYN000168

PATIENT
  Age: 38 Year
  Sex: Female

DRUGS (1)
  1. BIJUVA [Suspect]
     Active Substance: ESTRADIOL\PROGESTERONE
     Indication: Product used for unknown indication
     Route: 065

REACTIONS (1)
  - Ovarian cyst [Unknown]
